FAERS Safety Report 7907180-1 (Version None)
Quarter: 2011Q4

REPORT INFORMATION
  Report Type: 
  Country: None (occurrence: None)
  Receive Date: 20111110
  Receipt Date: 20110729
  Transmission Date: 20120403
  Serious: No
  Sender: FDA-Public Use
  Company Number: US-BAYER-2011-072594

PATIENT
  Sex: Female

DRUGS (2)
  1. MUSCLE RELAXANT [Concomitant]
     Indication: MUSCULOSKELETAL STIFFNESS
     Dosage: UNK
  2. ALEVE (CAPLET) [Suspect]
     Indication: MUSCULOSKELETAL STIFFNESS
     Dosage: 3 DF, ONCE
     Dates: start: 20110729

REACTIONS (1)
  - NO ADVERSE EVENT [None]
